FAERS Safety Report 23104992 (Version 2)
Quarter: 2023Q4

REPORT INFORMATION
  Report Type: Spontaneous
  Country: US (occurrence: US)
  Receive Date: 20231025
  Receipt Date: 20231025
  Transmission Date: 20240109
  Serious: Yes (Other)
  Sender: FDA-Public Use
  Company Number: US-Stemline Therapeutics, Inc.-2023ST002382

PATIENT
  Age: 65 Year
  Sex: Female

DRUGS (1)
  1. ORSERDU [Suspect]
     Active Substance: ELACESTRANT
     Indication: Product used for unknown indication
     Route: 048
     Dates: start: 20230707

REACTIONS (9)
  - Renal neoplasm [Unknown]
  - Blood urine present [Recovered/Resolved]
  - Muscle spasms [Unknown]
  - Kidney enlargement [Not Recovered/Not Resolved]
  - Illness [Unknown]
  - Foreign body in throat [Recovered/Resolved]
  - Product dose omission issue [Unknown]
  - Vomiting [Unknown]
  - Nausea [Unknown]
